FAERS Safety Report 10390096 (Version 4)
Quarter: 2015Q1

REPORT INFORMATION
  Report Type: Spontaneous
  Country: BR (occurrence: BR)
  Receive Date: 20140818
  Receipt Date: 20150112
  Transmission Date: 20150720
  Serious: Yes (Other)
  Sender: FDA-Public Use
  Company Number: BR-SA-2014SA108584

PATIENT
  Age: 34 Year
  Sex: Female
  Weight: 71 kg

DRUGS (5)
  1. VENALOT [Concomitant]
     Active Substance: COUMARIN\TROXERUTIN
     Indication: CARDIOVASCULAR DISORDER
     Dosage: TREATMENT START DATE: 2 AND HALF MONTH
     Route: 048
     Dates: start: 201405
  2. CLEXANE [Suspect]
     Active Substance: ENOXAPARIN SODIUM
     Indication: THROMBOSIS
     Route: 058
     Dates: start: 20140430, end: 201411
  3. VENALOT [Concomitant]
     Active Substance: COUMARIN\TROXERUTIN
     Indication: PAIN IN EXTREMITY
     Dosage: TREATMENT START DATE: 2 AND HALF MONTH
     Route: 048
     Dates: start: 201405
  4. CLEXANE [Suspect]
     Active Substance: ENOXAPARIN SODIUM
     Indication: THROMBOSIS
     Route: 058
     Dates: end: 20141215
  5. DACTIL [Concomitant]
     Indication: PROPHYLAXIS

REACTIONS (8)
  - Abortion threatened [Recovered/Resolved]
  - Thrombosis [Recovered/Resolved]
  - Urinary tract infection [Recovered/Resolved]
  - Thyroid function test abnormal [Not Recovered/Not Resolved]
  - Exposure during pregnancy [Unknown]
  - Coagulopathy [Unknown]
  - Anaemia [Unknown]
  - Abdominal pain [Unknown]

NARRATIVE: CASE EVENT DATE: 201407
